FAERS Safety Report 4896118-X (Version None)
Quarter: 2005Q4

REPORT INFORMATION
  Report Type: 
  Country: None (occurrence: None)
  Receive Date: 20051220
  Receipt Date: 20050817
  Transmission Date: 20060501
  Serious: Yes (Death, Hospitalization)
  Sender: FDA-Public Use
  Company Number: US144005

PATIENT
  Age: 56 Year
  Sex: Female

DRUGS (1)
  1. ENBREL [Suspect]
     Indication: PSORIASIS
     Dosage: 50 MG, 2 IN 1 WEEKS, SC
     Route: 058
     Dates: start: 20031001

REACTIONS (1)
  - ENCEPHALITIS VIRAL [None]
